FAERS Safety Report 7919267-8 (Version None)
Quarter: 2011Q4

REPORT INFORMATION
  Report Type: 
  Country: None (occurrence: None)
  Receive Date: 20111114
  Receipt Date: 20111103
  Transmission Date: 20120403
  Serious: Yes (Death)
  Sender: FDA-Public Use
  Company Number: ADR-2011-11042

PATIENT
  Age: 56 Year
  Sex: Male

DRUGS (3)
  1. LIORESAL [Suspect]
     Indication: BRAIN INJURY
     Dosage: 750.9 MCG, DAILY, INTRA
     Route: 037
  2. LIORESAL [Suspect]
     Indication: HEAD INJURY
     Dosage: 750.9 MCG, DAILY, INTRA
     Route: 037
  3. LIORESAL [Suspect]
     Indication: MUSCLE SPASTICITY
     Dosage: 750.9 MCG, DAILY, INTRA
     Route: 037

REACTIONS (1)
  - DEATH [None]
